FAERS Safety Report 18436722 (Version 11)
Quarter: 2021Q1

REPORT INFORMATION
  Report Type: Report from Study
  Country: JP (occurrence: JP)
  Receive Date: 20201028
  Receipt Date: 20210115
  Transmission Date: 20210419
  Serious: Yes (Hospitalization)
  Sender: FDA-Public Use
  Company Number: JP-EISAI MEDICAL RESEARCH-EC-2020-082714

PATIENT
  Age: 69 Year
  Sex: Female
  Weight: 46.7 kg

DRUGS (13)
  1. LENVATINIB [Suspect]
     Active Substance: LENVATINIB
     Indication: ENDOMETRIAL CANCER
     Route: 048
     Dates: start: 20201008, end: 20201019
  2. FLUOROMETHOLONE. [Concomitant]
     Active Substance: FLUOROMETHOLONE
     Dates: start: 20200228, end: 20201006
  3. POLARAMINE [Concomitant]
     Active Substance: DEXCHLORPHENIRAMINE MALEATE
     Dates: start: 20200228, end: 20201006
  4. AMLODIPINE [Concomitant]
     Active Substance: AMLODIPINE BESYLATE
     Dates: start: 201501, end: 20201031
  5. MAGMITT [Concomitant]
     Active Substance: MAGNESIUM OXIDE
     Dates: start: 20201009
  6. CANDESARTAN. [Concomitant]
     Active Substance: CANDESARTAN
     Dates: start: 20201015, end: 20201026
  7. BROTIZOLAM [Concomitant]
     Active Substance: BROTIZOLAM
     Dates: start: 20201007
  8. PEMBROLIZUMAB. [Suspect]
     Active Substance: PEMBROLIZUMAB
     Indication: ENDOMETRIAL CANCER
     Route: 041
     Dates: start: 20201008, end: 20201008
  9. CETIRIZINE HYDROCHLORIDE. [Concomitant]
     Active Substance: CETIRIZINE HYDROCHLORIDE
     Dates: start: 20200228, end: 20201006
  10. MEQUITAZINE [Concomitant]
     Active Substance: MEQUITAZINE
     Dates: start: 20200228, end: 20201006
  11. SENNOSIDES. [Concomitant]
     Active Substance: SENNOSIDES
     Dates: start: 20201011
  12. TRANEXAMIC ACID. [Concomitant]
     Active Substance: TRANEXAMIC ACID
     Dates: start: 20200228, end: 20201006
  13. MECOBALAMIN [Concomitant]
     Active Substance: METHYLCOBALAMIN
     Dates: start: 201901, end: 20201019

REACTIONS (1)
  - Erythema multiforme [Recovered/Resolved]

NARRATIVE: CASE EVENT DATE: 20201018
